FAERS Safety Report 16946418 (Version 1)
Quarter: 2019Q4

REPORT INFORMATION
  Report Type: Spontaneous
  Country: US (occurrence: US)
  Receive Date: 20190830
  Receipt Date: 20190830
  Transmission Date: 20200122
  Serious: No
  Sender: FDA-Public Use
  Company Number: None

PATIENT
  Age: 58 Year
  Sex: Female
  Weight: 70.31 kg

DRUGS (2)
  1. TYMLOS [Suspect]
     Active Substance: ABALOPARATIDE
     Indication: PATHOLOGICAL FRACTURE
     Dosage: OTHE STRENGTH 3120 MCG/1.56ML PEN INJ, 3120MCG
     Route: 058
     Dates: start: 201906
  2. TYMLOS [Suspect]
     Active Substance: ABALOPARATIDE
     Indication: SENILE OSTEOPOROSIS
     Dosage: OTHE STRENGTH 3120 MCG/1.56ML PEN INJ, 3120MCG
     Route: 058
     Dates: start: 201906

REACTIONS (2)
  - Aneurysm [None]
  - Fall [None]
